FAERS Safety Report 17753144 (Version 7)
Quarter: 2021Q2

REPORT INFORMATION
  Report Type: Report from Study
  Country: US (occurrence: US)
  Receive Date: 20200506
  Receipt Date: 20210424
  Transmission Date: 20210716
  Serious: Yes (Hospitalization)
  Sender: FDA-Public Use
  Company Number: NVSC2020US123172

PATIENT
  Age: 76 Year
  Sex: Female

DRUGS (2)
  1. ENTRESTO [Suspect]
     Active Substance: SACUBITRIL\VALSARTAN
     Indication: CARDIAC FAILURE
  2. ENTRESTO [Suspect]
     Active Substance: SACUBITRIL\VALSARTAN
     Indication: CARDIAC FAILURE CONGESTIVE
     Dosage: 200 MG, BID (97/103MG)
     Route: 048
     Dates: start: 2019

REACTIONS (8)
  - Joint swelling [Recovering/Resolving]
  - Balance disorder [Unknown]
  - Thyroid disorder [Unknown]
  - Cough [Unknown]
  - Spinal stenosis [Unknown]
  - Back pain [Unknown]
  - Asthma [Unknown]
  - Fluid overload [Recovering/Resolving]

NARRATIVE: CASE EVENT DATE: 20200505
